FAERS Safety Report 6899091-8 (Version None)
Quarter: 2010Q3

REPORT INFORMATION
  Report Type: 
  Country: None (occurrence: None)
  Receive Date: 20100802
  Receipt Date: 20080225
  Transmission Date: 20110219
  Serious: Yes (Other)
  Sender: FDA-Public Use
  Company Number: US-PFIZER INC-2008001707

PATIENT
  Sex: Female
  Weight: 59.09 kg

DRUGS (14)
  1. LYRICA [Suspect]
     Indication: FIBROMYALGIA
     Dosage: EVERYDAY
     Dates: start: 20071226, end: 20080103
  2. ALL OTHER THERAPEUTIC PRODUCTS [Suspect]
     Dates: start: 20080103, end: 20080103
  3. NEURONTIN [Concomitant]
     Indication: SJOGREN'S SYNDROME
     Dates: end: 20071201
  4. PLAQUENIL [Concomitant]
     Indication: SJOGREN'S SYNDROME
     Dates: end: 20071201
  5. WELLBUTRIN [Concomitant]
     Indication: SMOKING CESSATION THERAPY
  6. LEVOXYL [Concomitant]
     Indication: HYPOTHYROIDISM
  7. PRILOSEC [Concomitant]
  8. TYLENOL [Concomitant]
     Indication: PAIN
  9. TRAMADOL HYDROCHLORIDE [Concomitant]
     Indication: PAIN
  10. CELEBREX [Concomitant]
     Indication: PAIN
  11. DITROPAN [Concomitant]
     Indication: NEUROGENIC BLADDER
  12. LUVOX [Concomitant]
     Indication: DEPRESSION
  13. CLONAZEPAM [Concomitant]
  14. TRAZODONE [Concomitant]

REACTIONS (5)
  - DYSPNOEA [None]
  - PRURITUS [None]
  - RASH [None]
  - SOMNOLENCE [None]
  - TREMOR [None]
